FAERS Safety Report 13569883 (Version 2)
Quarter: 2017Q3

REPORT INFORMATION
  Report Type: Spontaneous
  Country: JP (occurrence: JP)
  Receive Date: 20170522
  Receipt Date: 20170829
  Transmission Date: 20171127
  Serious: Yes (Death)
  Sender: FDA-Public Use
  Company Number: JP-GE HEALTHCARE LIFE SCIENCES-OMPQ-PR-1702S-0238

PATIENT

DRUGS (12)
  1. XYLOCAINE [Suspect]
     Active Substance: LIDOCAINE HYDROCHLORIDE
     Indication: PRODUCT USED FOR UNKNOWN INDICATION
     Dosage: UNK
     Route: 013
     Dates: start: 20170119
  2. BICALUTAMIDE. [Concomitant]
     Active Substance: BICALUTAMIDE
  3. VALSARTAN. [Concomitant]
     Active Substance: VALSARTAN
  4. ARICEPT [Concomitant]
     Active Substance: DONEPEZIL HYDROCHLORIDE
  5. ATORVASTATIN [Concomitant]
     Active Substance: ATORVASTATIN
  6. PANALDINE [Concomitant]
     Active Substance: TICLOPIDINE HYDROCHLORIDE
  7. ETIZOLAM [Concomitant]
     Active Substance: ETIZOLAM
  8. SENNARIDE [Concomitant]
     Active Substance: SENNOSIDES A AND B
  9. AMLODIN [Concomitant]
     Active Substance: AMLODIPINE BESYLATE
  10. HEPARIN SODIUM. [Concomitant]
     Active Substance: HEPARIN SODIUM
  11. OMNIPAQUE [Suspect]
     Active Substance: IOHEXOL
     Indication: CARDIAC FAILURE CHRONIC
     Dosage: 109 ML, SINGLE
     Route: 042
     Dates: start: 20170119, end: 20170119
  12. NITOROL [Suspect]
     Active Substance: ISOSORBIDE DINITRATE
     Indication: PRODUCT USED FOR UNKNOWN INDICATION
     Dosage: UNK
     Dates: start: 20170119

REACTIONS (2)
  - Pulmonary oedema [Fatal]
  - Anaphylactic shock [Fatal]

NARRATIVE: CASE EVENT DATE: 20170119
